FAERS Safety Report 8430704-5 (Version None)
Quarter: 2012Q2

REPORT INFORMATION
  Report Type: 
  Country: None (occurrence: None)
  Receive Date: 20120323
  Receipt Date: 20110607
  Transmission Date: 20120825
  Serious: Yes (Hospitalization)
  Sender: FDA-Public Use
  Company Number: 163-21880-11061067

PATIENT
  Age: 50 Year
  Sex: Female

DRUGS (3)
  1. ONDANSETRON [Concomitant]
  2. VELCADE (BORETEZOMIB) [Concomitant]
  3. REVLIMID [Suspect]
     Indication: MULTIPLE MYELOMA
     Dosage: 25 MG, 1 IN 1 D, PO
     Route: 048
     Dates: start: 20110509, end: 20110523

REACTIONS (5)
  - HYPERSENSITIVITY [None]
  - CHEST PAIN [None]
  - BACK PAIN [None]
  - RASH [None]
  - HYPOAESTHESIA [None]
